FAERS Safety Report 11126340 (Version 2)
Quarter: 2020Q2

REPORT INFORMATION
  Report Type: Report from Study
  Country: IN (occurrence: IN)
  Receive Date: 20150520
  Receipt Date: 20200624
  Transmission Date: 20200713
  Serious: Yes (Death, Other)
  Sender: FDA-Public Use
  Company Number: PHHY2015IN058041

PATIENT
  Age: 75 Year
  Sex: Male

DRUGS (2)
  1. GLIVEC [Suspect]
     Active Substance: IMATINIB MESYLATE
     Dosage: 600 MG (1 X 400MG + 2 X 100MG TABLETS)
     Route: 065
  2. GLIVEC [Suspect]
     Active Substance: IMATINIB MESYLATE
     Indication: CHRONIC MYELOID LEUKAEMIA
     Dosage: 400 MG
     Route: 065

REACTIONS (2)
  - Dysentery [Unknown]
  - Death [Fatal]

NARRATIVE: CASE EVENT DATE: 20200616
